FAERS Safety Report 6865382-X (Version None)
Quarter: 2010Q3

REPORT INFORMATION
  Report Type: 
  Country: None (occurrence: None)
  Receive Date: 20100721
  Receipt Date: 20080421
  Transmission Date: 20110219
  Serious: No
  Sender: FDA-Public Use
  Company Number: US-PFIZER INC-2008035707

PATIENT
  Sex: Male
  Weight: 100 kg

DRUGS (4)
  1. CHANTIX [Suspect]
     Indication: SMOKING CESSATION THERAPY
     Dates: start: 20080119
  2. CHANTIX [Suspect]
     Indication: EMPHYSEMA
  3. OTHER RESPIRATORY SYSTEM PRODUCTS [Concomitant]
  4. CHOLESTEROL [Concomitant]

REACTIONS (11)
  - EPISTAXIS [None]
  - HYPERTENSION [None]
  - ILL-DEFINED DISORDER [None]
  - IMPULSIVE BEHAVIOUR [None]
  - IRRITABILITY [None]
  - MOOD ALTERED [None]
  - NIGHTMARE [None]
  - PERSONALITY CHANGE [None]
  - RASH ERYTHEMATOUS [None]
  - RESTLESSNESS [None]
  - SLEEP DISORDER [None]
